FAERS Safety Report 25513071 (Version 1)
Quarter: 2025Q3

REPORT INFORMATION
  Report Type: Spontaneous
  Country: EU (occurrence: EU)
  Receive Date: 20250703
  Receipt Date: 20250703
  Transmission Date: 20251020
  Serious: Yes (Hospitalization, Other)
  Sender: BAYER HEALTHCARE PHARMACEUTICALS INC.
  Company Number: EU-BAYER-2025A084902

PATIENT
  Age: 63 Year
  Sex: Male

DRUGS (6)
  1. DAROLUTAMIDE [Suspect]
     Active Substance: DAROLUTAMIDE
  2. DOCETAXEL [Suspect]
     Active Substance: DOCETAXEL
  3. DOCETAXEL [Suspect]
     Active Substance: DOCETAXEL
  4. DOCETAXEL [Suspect]
     Active Substance: DOCETAXEL
  5. DOCETAXEL [Suspect]
     Active Substance: DOCETAXEL
  6. DOCETAXEL [Suspect]
     Active Substance: DOCETAXEL
     Dates: end: 202412

REACTIONS (7)
  - Chemotherapy [None]
  - Syncope [None]
  - Neutropenia [None]
  - Exercise tolerance decreased [None]
  - Transaminases increased [None]
  - Anaemia [None]
  - Asthenia [None]
